FAERS Safety Report 6422208-6 (Version None)
Quarter: 2009Q4

REPORT INFORMATION
  Report Type: 
  Country: None (occurrence: None)
  Receive Date: 20091030
  Receipt Date: 20091022
  Transmission Date: 20100525
  Serious: Yes (Hospitalization)
  Sender: FDA-Public Use
  Company Number: PHHO2009DE13008

PATIENT
  Sex: Female
  Weight: 44 kg

DRUGS (1)
  1. RAD 666 RAD+TAB+PTR [Suspect]
     Indication: LUNG TRANSPLANT
     Dosage: 0.5 MG, UNK
     Route: 048
     Dates: start: 20090630

REACTIONS (5)
  - ACCIDENTAL OVERDOSE [None]
  - BLOOD GLUCOSE INCREASED [None]
  - CONVULSION [None]
  - PETIT MAL EPILEPSY [None]
  - RETROGRADE AMNESIA [None]
